FAERS Safety Report 8957738 (Version 1)
Quarter: 2012Q4

REPORT INFORMATION
  Report Type: 
  Country: ES (occurrence: ES)
  Receive Date: 20121211
  Receipt Date: 20121211
  Transmission Date: 20130627
  Serious: Yes (Other)
  Sender: FDA-Public Use
  Company Number: ES-UCBSA-072209

PATIENT
  Age: 41 Year
  Sex: Male

DRUGS (6)
  1. LACOSAMIDE [Suspect]
     Indication: EPILEPSY
  2. LACOSAMIDE [Suspect]
     Indication: EPILEPSY
     Dosage: DOSE INCREASING UPTO 200 MG/DAY
  3. LACOSAMIDE [Suspect]
     Indication: EPILEPSY
     Dosage: REDUCTION OF DOSE
  4. LACOSAMIDE [Suspect]
     Indication: EPILEPSY
     Dosage: INCREASED UPTO 200 MG/DAY
  5. VALPROATE [Concomitant]
     Indication: EPILEPSY
  6. TOPIRAMATE [Concomitant]
     Indication: EPILEPSY

REACTIONS (2)
  - Atrial fibrillation [Recovered/Resolved]
  - Drug ineffective [Recovered/Resolved]
